FAERS Safety Report 5142115-9 (Version None)
Quarter: 2006Q4

REPORT INFORMATION
  Report Type: 
  Country: None (occurrence: None)
  Receive Date: 20061027
  Receipt Date: 20061013
  Transmission Date: 20070319
  Serious: Yes (Other)
  Sender: FDA-Public Use
  Company Number: 2006S1009125

PATIENT
  Age: 45 Year
  Sex: Female
  Weight: 90.7194 kg

DRUGS (5)
  1. LEVOTHYROXINE SODIUM [Suspect]
     Indication: HYPOTHYROIDISM
     Dosage: 224 UG; QD; PO
     Route: 048
     Dates: start: 20060825, end: 20060101
  2. PANTOPRAZOLE SODIUM [Concomitant]
  3. DILTIAZEM HCL [Concomitant]
  4. HYDROCHLOROTHIAZIIDE W/VALSARTAN [Concomitant]
  5. MIRTAZAPINE [Concomitant]

REACTIONS (6)
  - BLOOD THYROID STIMULATING HORMONE INCREASED [None]
  - DRUG EFFECT DECREASED [None]
  - HEADACHE [None]
  - HYPERTENSION [None]
  - THERAPEUTIC RESPONSE UNEXPECTED WITH DRUG SUBSTITUTION [None]
  - VOMITING [None]
